FAERS Safety Report 7177712-2 (Version None)
Quarter: 2010Q4

REPORT INFORMATION
  Report Type: 
  Country: None (occurrence: None)
  Receive Date: 20101220
  Receipt Date: 20101207
  Transmission Date: 20110411
  Serious: Yes (Death, Hospitalization)
  Sender: FDA-Public Use
  Company Number: US-SANOFI-AVENTIS-2010SA074409

PATIENT
  Age: 61 Year
  Sex: Male

DRUGS (5)
  1. PLAVIX [Suspect]
     Route: 048
     Dates: start: 20080801, end: 20101001
  2. ATORVASTATIN [Suspect]
     Route: 065
     Dates: start: 20050101
  3. ASPIRIN [Suspect]
     Route: 065
  4. AGGRENOX [Concomitant]
     Route: 065
     Dates: start: 20050101, end: 20080801
  5. PROPRANOLOL [Concomitant]

REACTIONS (7)
  - BLOOD URINE PRESENT [None]
  - CARDIAC ARREST [None]
  - CEREBROVASCULAR ACCIDENT [None]
  - COMA [None]
  - CONFUSIONAL STATE [None]
  - FALL [None]
  - HEMIPARESIS [None]
